FAERS Safety Report 7099397-6 (Version None)
Quarter: 2010Q4

REPORT INFORMATION
  Report Type: 
  Country: None (occurrence: None)
  Receive Date: 20101105
  Receipt Date: 20101020
  Transmission Date: 20110411
  Serious: Yes (Other)
  Sender: FDA-Public Use
  Company Number: CTI_01252_2010

PATIENT
  Age: 35 Year
  Sex: Female

DRUGS (1)
  1. MEIACT (MEIACT MS) (NOT SPECIFIED) [Suspect]
     Indication: PRODUCT USED FOR UNKNOWN INDICATION
     Dosage: (ORAL)
     Route: 048
     Dates: start: 20091101, end: 20091101

REACTIONS (1)
  - DRUG ERUPTION [None]
